FAERS Safety Report 9587335 (Version 1)
Quarter: 2013Q4

REPORT INFORMATION
  Report Type: Spontaneous
  Country: US (occurrence: None)
  Receive Date: 20131003
  Receipt Date: 20131003
  Transmission Date: 20140711
  Serious: No
  Sender: FDA-Public Use
  Company Number: None

PATIENT
  Age: 61 Year
  Sex: Male

DRUGS (1)
  1. INLYTA [Suspect]
     Dosage: 1
     Route: 048
     Dates: start: 20130801

REACTIONS (2)
  - Nausea [None]
  - Decreased appetite [None]
